FAERS Safety Report 17652266 (Version 1)
Quarter: 2020Q2

REPORT INFORMATION
  Report Type: Spontaneous
  Country: GB (occurrence: GB)
  Receive Date: 20200409
  Receipt Date: 20200409
  Transmission Date: 20200713
  Serious: Yes (Hospitalization)
  Sender: FDA-Public Use
  Company Number: GB-ALLERGAN-2014769US

PATIENT
  Sex: Female

DRUGS (9)
  1. SODIUM VALPROATE [Concomitant]
     Active Substance: VALPROATE SODIUM
  2. FLUOXETINE HYDROCHLORIDE. [Concomitant]
     Active Substance: FLUOXETINE HYDROCHLORIDE
  3. FUROSEMIDE SODIUM [Concomitant]
     Active Substance: FUROSEMIDE SODIUM
  4. SIMVASTATIN. [Concomitant]
     Active Substance: SIMVASTATIN
  5. PARACETAMOL [Concomitant]
     Active Substance: ACETAMINOPHEN
  6. LORAZEPAM. [Concomitant]
     Active Substance: LORAZEPAM
  7. DALBAVANCIN HCL UNK [Suspect]
     Active Substance: DALBAVANCIN HYDROCHLORIDE
     Indication: INFECTION
     Route: 042
     Dates: start: 20200323, end: 20200323
  8. PYRIDOXINE [Concomitant]
     Active Substance: PYRIDOXINE
  9. AMISULPRIDE [Concomitant]
     Active Substance: AMISULPRIDE

REACTIONS (1)
  - Blood alkaline phosphatase abnormal [Not Recovered/Not Resolved]

NARRATIVE: CASE EVENT DATE: 20200323
